FAERS Safety Report 10059879 (Version 6)
Quarter: 2016Q3

REPORT INFORMATION
  Report Type: Spontaneous
  Country: US (occurrence: US)
  Receive Date: 20140404
  Receipt Date: 20160829
  Transmission Date: 20161108
  Serious: Yes (Other)
  Sender: FDA-Public Use
  Company Number: US-GLAXOSMITHKLINE-A1066920A

PATIENT
  Age: 28 Year
  Sex: Male

DRUGS (2)
  1. ALBUTEROL. [Suspect]
     Active Substance: ALBUTEROL
     Indication: ASTHMA
  2. VENTOLIN [Suspect]
     Active Substance: ALBUTEROL SULFATE
     Indication: ASTHMA
     Dosage: 2 PUFFS AS REQUIRED
     Route: 055

REACTIONS (14)
  - Asthma [Not Recovered/Not Resolved]
  - Pulmonary function test decreased [Not Recovered/Not Resolved]
  - Choking [Unknown]
  - Fall [Unknown]
  - Abdominal discomfort [Unknown]
  - Impaired work ability [Unknown]
  - Foreign body [Unknown]
  - Oropharyngeal pain [Unknown]
  - Product quality issue [Unknown]
  - Fear [Unknown]
  - Mouth haemorrhage [Unknown]
  - Drug ineffective [Not Recovered/Not Resolved]
  - Loss of consciousness [Unknown]
  - Emotional distress [Unknown]

NARRATIVE: CASE EVENT DATE: 20130320
